FAERS Safety Report 4801498-7 (Version None)
Quarter: 2005Q4

REPORT INFORMATION
  Report Type: 
  Country: None (occurrence: None)
  Receive Date: 20051018
  Receipt Date: 20051006
  Transmission Date: 20060501
  Serious: Yes (Death, Other)
  Sender: FDA-Public Use
  Company Number: NSADSS2003014022

PATIENT
  Sex: Male
  Weight: 81.65 kg

DRUGS (2)
  1. REMICADE [Suspect]
     Indication: RHEUMATOID ARTHRITIS
     Route: 041
  2. PREDNISONE [Concomitant]

REACTIONS (5)
  - CEREBROVASCULAR ACCIDENT [None]
  - CRYPTOCOCCOSIS [None]
  - MENINGITIS CRYPTOCOCCAL [None]
  - MYOCARDIAL INFARCTION [None]
  - SURGERY [None]
